FAERS Safety Report 10925234 (Version 1)
Quarter: 2015Q1

REPORT INFORMATION
  Report Type: Spontaneous
  Country: US (occurrence: None)
  Receive Date: 20150129
  Receipt Date: 20150129
  Transmission Date: 20150721
  Serious: Yes (Other)
  Sender: FDA-Public Use
  Company Number: 2014007844

PATIENT
  Sex: Female
  Weight: 57 kg

DRUGS (4)
  1. VITAMIN B12 [Concomitant]
     Active Substance: CYANOCOBALAMIN
  2. KEPPRA [Suspect]
     Active Substance: LEVETIRACETAM
     Indication: SEIZURE
     Route: 048
  3. AMICA (AMICA MONTANA OIL, CHAMAEMELUM NOBILE OIL, GUAIAZULENE, HEPARIN) [Concomitant]
  4. MERCURIUS CYANATUS D6 (MERCURIC CYANIDE) [Concomitant]

REACTIONS (11)
  - Anger [None]
  - Suicidal ideation [None]
  - Restless legs syndrome [None]
  - Tinnitus [None]
  - Disturbance in attention [None]
  - Seizure [None]
  - Drug hypersensitivity [None]
  - Asthenia [None]
  - Depression [None]
  - Somnolence [None]
  - Nightmare [None]
